FAERS Safety Report 5165098-4 (Version None)
Quarter: 2006Q4

REPORT INFORMATION
  Report Type: 
  Country: None (occurrence: None)
  Receive Date: 20061127
  Receipt Date: 20061024
  Transmission Date: 20070319
  Serious: Yes (Death)
  Sender: FDA-Public Use
  Company Number: AND_AAPCC_2006_0285

PATIENT
  Age: 36 Year

DRUGS (2)
  1. ACETAMINOPHEN AND CODEINE PHOSPHATE [Suspect]
     Dosage: DF UNK 047
  2. ACETAMINOPHEN [Suspect]
     Dosage: DF UNK 047

REACTIONS (1)
  - MEDICATION ERROR [None]
